FAERS Safety Report 10498574 (Version 1)
Quarter: 2014Q4

REPORT INFORMATION
  Report Type: Spontaneous
  Country: SE (occurrence: SE)
  Receive Date: 20141006
  Receipt Date: 20141006
  Transmission Date: 20150528
  Serious: Yes (Other)
  Sender: FDA-Public Use
  Company Number: SE-TEVA-513106ISR

PATIENT
  Sex: Male

DRUGS (1)
  1. OXASCAND [Suspect]
     Active Substance: OXAZEPAM

REACTIONS (5)
  - Depression [Unknown]
  - Nightmare [Unknown]
  - Dependence [Unknown]
  - Suicidal ideation [Unknown]
  - Aggression [Unknown]
